FAERS Safety Report 15966048 (Version 5)
Quarter: 2022Q1

REPORT INFORMATION
  Report Type: Spontaneous
  Country: PL (occurrence: PL)
  Receive Date: 20190215
  Receipt Date: 20220311
  Transmission Date: 20220424
  Serious: Yes (Death, Hospitalization, Other)
  Sender: FDA-Public Use
  Company Number: PL-AUROBINDO-AUR-APL-2019-007832

PATIENT
  Age: 58 Year
  Sex: Female

DRUGS (51)
  1. AMOXICILLIN\CLAVULANIC ACID [Suspect]
     Active Substance: AMOXICILLIN\CLAVULANIC ACID
     Indication: Moraxella infection
     Dosage: UNK UNK, UNKNOWN FREQ.
     Route: 065
  2. AMOXICILLIN\CLAVULANIC ACID [Suspect]
     Active Substance: AMOXICILLIN\CLAVULANIC ACID
     Indication: Escherichia urinary tract infection
  3. AMOXICILLIN\CLAVULANIC ACID [Suspect]
     Active Substance: AMOXICILLIN\CLAVULANIC ACID
     Indication: Bronchitis
  4. AMOXICILLIN\CLAVULANIC ACID [Suspect]
     Active Substance: AMOXICILLIN\CLAVULANIC ACID
     Indication: Corynebacterium infection
  5. AMOXICILLIN\CLAVULANIC ACID [Suspect]
     Active Substance: AMOXICILLIN\CLAVULANIC ACID
     Indication: Urinary tract infection
  6. BUDESONIDE [Suspect]
     Active Substance: BUDESONIDE
     Indication: Polyp
     Dosage: UNK
     Route: 065
  7. BUDESONIDE [Suspect]
     Active Substance: BUDESONIDE
     Indication: Otitis media
  8. CEFUROXIME [Suspect]
     Active Substance: CEFUROXIME
     Indication: Bacterial infection
     Dosage: UNK
     Route: 065
  9. CYCLOSPORINE [Suspect]
     Active Substance: CYCLOSPORINE
     Indication: Lung transplant
     Dosage: 50 MILLIGRAM, TWO TIMES A DAY
     Route: 065
  10. CYCLOSPORINE [Suspect]
     Active Substance: CYCLOSPORINE
     Indication: Immunosuppressant drug therapy
  11. CYCLOSPORINE [Suspect]
     Active Substance: CYCLOSPORINE
     Indication: Immunosuppression
  12. GLIMEPIRIDE [Suspect]
     Active Substance: GLIMEPIRIDE
     Indication: Diabetes mellitus
     Dosage: UNK
     Route: 065
  13. METRONIDAZOLE [Suspect]
     Active Substance: METRONIDAZOLE
     Indication: Infection
     Dosage: UNK
     Route: 065
  14. PANTOPRAZOLE [Suspect]
     Active Substance: PANTOPRAZOLE
     Indication: Product used for unknown indication
     Dosage: UNK
     Route: 065
  15. VENLAFAXINE [Suspect]
     Active Substance: VENLAFAXINE HYDROCHLORIDE
     Indication: Anxiety disorder
     Dosage: UNK
     Route: 065
  16. AMPHOTERICIN B [Suspect]
     Active Substance: AMPHOTERICIN B
     Indication: Bacterial infection
     Dosage: UNK
     Route: 065
  17. AMPICILLIN SODIUM\SULBACTAM SODIUM [Suspect]
     Active Substance: AMPICILLIN SODIUM\SULBACTAM SODIUM
     Indication: Bacterial infection
     Dosage: UNK
     Route: 065
  18. AMIKACIN [Suspect]
     Active Substance: AMIKACIN
     Indication: Bacterial infection
     Dosage: UNK
     Route: 065
  19. CIPROFLOXACIN [Suspect]
     Active Substance: CIPROFLOXACIN
     Indication: Product used for unknown indication
     Dosage: UNK
     Route: 065
  20. CEFTAZIDIME [Suspect]
     Active Substance: CEFTAZIDIME
     Indication: Escherichia sepsis
     Dosage: UNK
     Route: 065
  21. CEFTAZIDIME [Suspect]
     Active Substance: CEFTAZIDIME
     Indication: Otitis media
  22. CEFTAZIDIME [Suspect]
     Active Substance: CEFTAZIDIME
     Indication: Bacterial infection
  23. CLINDAMYCIN [Suspect]
     Active Substance: CLINDAMYCIN
     Indication: Polyp
     Dosage: UNK
     Route: 065
  24. CLINDAMYCIN [Suspect]
     Active Substance: CLINDAMYCIN
     Indication: Otitis media
  25. GANCICLOVIR [Suspect]
     Active Substance: GANCICLOVIR
     Indication: Cytomegalovirus infection
     Dosage: UNK
     Route: 065
  26. IMIPENEM [Suspect]
     Active Substance: IMIPENEM
     Indication: Bacterial infection
     Dosage: UNK
     Route: 065
  27. INSULIN NOS [Suspect]
     Active Substance: INSULIN NOS
     Indication: Diabetes mellitus
     Dosage: UNK
     Route: 065
  28. ITRACONAZOLE [Suspect]
     Active Substance: ITRACONAZOLE
     Indication: Bacterial infection
     Dosage: UNK
     Route: 065
  29. MYCOPHENOLATE MOFETIL [Suspect]
     Active Substance: MYCOPHENOLATE MOFETIL
     Indication: Lung transplant
     Dosage: 1000 MILLIGRAM, TWO TIMES A DAY
     Route: 065
  30. MYCOPHENOLATE MOFETIL [Suspect]
     Active Substance: MYCOPHENOLATE MOFETIL
     Indication: Immunosuppression
  31. MYCOPHENOLATE MOFETIL [Suspect]
     Active Substance: MYCOPHENOLATE MOFETIL
     Indication: Immunosuppressant drug therapy
  32. METHYLPREDNISOLONE [Suspect]
     Active Substance: METHYLPREDNISOLONE
     Indication: Lung transplant
     Dosage: 0.5 MILLIGRAM, ONCE A DAY
     Route: 065
  33. METHYLPREDNISOLONE [Suspect]
     Active Substance: METHYLPREDNISOLONE
     Indication: Lung transplant rejection
  34. METHYLPREDNISOLONE [Suspect]
     Active Substance: METHYLPREDNISOLONE
     Indication: Immunosuppression
  35. METHYLPREDNISOLONE [Suspect]
     Active Substance: METHYLPREDNISOLONE
     Indication: Immunosuppressant drug therapy
  36. MIANSERIN [Suspect]
     Active Substance: MIANSERIN
     Indication: Depression
     Dosage: UNK
     Route: 065
  37. NYSTATIN [Suspect]
     Active Substance: NYSTATIN
     Indication: Acinetobacter infection
     Dosage: UNK
     Route: 065
  38. OPIPRAMOL [Suspect]
     Active Substance: OPIPRAMOL
     Indication: Pulmonary embolism
     Dosage: UNK
     Route: 065
  39. OPIPRAMOL [Suspect]
     Active Substance: OPIPRAMOL
     Indication: Anxiety disorder
  40. PANTOPRAZOLE SODIUM [Suspect]
     Active Substance: PANTOPRAZOLE SODIUM
     Indication: Product used for unknown indication
     Dosage: UNK
     Route: 065
  41. PREDNISONE [Suspect]
     Active Substance: PREDNISONE
     Indication: Lung transplant
     Dosage: 10 MILLIGRAM, ONCE A DAY
     Route: 065
  42. PREDNISONE [Suspect]
     Active Substance: PREDNISONE
     Indication: Immunosuppression
  43. PREDNISONE [Suspect]
     Active Substance: PREDNISONE
     Indication: Immunosuppressant drug therapy
  44. RITUXIMAB [Suspect]
     Active Substance: RITUXIMAB
     Indication: Lymphocyte count decreased
     Dosage: UNK
     Route: 065
  45. TAZOBACTAM [Suspect]
     Active Substance: TAZOBACTAM
     Indication: Infection
     Dosage: UNK
     Route: 065
  46. TACROLIMUS [Suspect]
     Active Substance: TACROLIMUS
     Indication: Lung transplant
     Dosage: 0.5 MILLIGRAM, ONCE A DAY
     Route: 065
  47. TACROLIMUS [Suspect]
     Active Substance: TACROLIMUS
     Indication: Immunosuppression
  48. TACROLIMUS [Suspect]
     Active Substance: TACROLIMUS
     Indication: Immunosuppressant drug therapy
  49. VALGANCICLOVIR [Suspect]
     Active Substance: VALGANCICLOVIR
     Indication: Cytomegalovirus infection
     Dosage: UNK
     Route: 065
  50. ALBUMIN HUMAN [Concomitant]
     Active Substance: ALBUMIN HUMAN
     Indication: Product used for unknown indication
     Dosage: 100 ML, UNK
     Route: 065
  51. IMMUNGLOBULIN [Concomitant]
     Indication: Lung transplant
     Dosage: UNK, EVERY THREE WEEKS
     Route: 065

REACTIONS (31)
  - Bacterial infection [Fatal]
  - Diabetes mellitus [Fatal]
  - Leukopenia [Fatal]
  - Escherichia sepsis [Fatal]
  - Sepsis [Fatal]
  - Transplant rejection [Fatal]
  - Proteus infection [Unknown]
  - Candida infection [Unknown]
  - Electrolyte imbalance [Unknown]
  - Bronchitis [Unknown]
  - Renal failure [Not Recovered/Not Resolved]
  - Pulmonary embolism [Unknown]
  - Lung transplant rejection [Unknown]
  - Pseudomonas infection [Recovered/Resolved]
  - Cytomegalovirus infection [Not Recovered/Not Resolved]
  - Escherichia urinary tract infection [Unknown]
  - Otitis media [Unknown]
  - Acinetobacter infection [Unknown]
  - Hypoproteinaemia [Unknown]
  - Moraxella infection [Unknown]
  - Klebsiella infection [Unknown]
  - Anxiety disorder [Unknown]
  - Hypogammaglobulinaemia [Unknown]
  - Diabetic ketoacidosis [Unknown]
  - Aspergillus infection [Unknown]
  - Depressive symptom [Unknown]
  - Corynebacterium infection [Unknown]
  - Ear infection [Unknown]
  - Pneumonia klebsiella [Unknown]
  - Aural polyp [Unknown]
  - Polyp [Unknown]
